FAERS Safety Report 6087921-1 (Version None)
Quarter: 2009Q1

REPORT INFORMATION
  Report Type: 
  Country: None (occurrence: None)
  Receive Date: 20090218
  Receipt Date: 20090218
  Transmission Date: 20090719
  Serious: Yes (Life-Threatening, Hospitalization)
  Sender: FDA-Public Use
  Company Number: None

PATIENT
  Age: 40 Year
  Sex: Female
  Weight: 93.5 kg

DRUGS (1)
  1. VANCOMYCIN [Suspect]
     Indication: INFECTION PROPHYLAXIS
     Dosage: 500MG ONCE IV
     Route: 042
     Dates: start: 20081212, end: 20081212

REACTIONS (28)
  - AGGRESSION [None]
  - AGITATION [None]
  - ANAPHYLACTIC REACTION [None]
  - ANAPHYLACTIC SHOCK [None]
  - ANURIA [None]
  - ATELECTASIS [None]
  - CARDIO-RESPIRATORY ARREST [None]
  - CLOSTRIDIUM DIFFICILE COLITIS [None]
  - CYANOSIS [None]
  - ENTEROBACTER INFECTION [None]
  - GASTROINTESTINAL HAEMORRHAGE [None]
  - HAEMODIALYSIS [None]
  - HYPERTENSION [None]
  - HYPOXIA [None]
  - METABOLIC ACIDOSIS [None]
  - MULTI-ORGAN FAILURE [None]
  - OBESITY [None]
  - PNEUMONIA [None]
  - RECTAL HAEMORRHAGE [None]
  - RENAL DISORDER [None]
  - RENAL FAILURE ACUTE [None]
  - RENAL INJURY [None]
  - RESPIRATORY FAILURE [None]
  - RHABDOMYOLYSIS [None]
  - SEPTIC SHOCK [None]
  - SPUTUM CULTURE POSITIVE [None]
  - TACHYCARDIA [None]
  - UNRESPONSIVE TO STIMULI [None]
